FAERS Safety Report 14799835 (Version 1)
Quarter: 2018Q2

REPORT INFORMATION
  Report Type: Spontaneous
  Country: US (occurrence: US)
  Receive Date: 20180424
  Receipt Date: 20180424
  Transmission Date: 20180711
  Serious: No
  Sender: FDA-Public Use
  Company Number: US-PERRIGO-17US030000

PATIENT
  Sex: Female

DRUGS (1)
  1. FAMOTIDINE. [Suspect]
     Active Substance: FAMOTIDINE
     Indication: ULCER
     Dosage: UNKNOWN, UNKNOWN
     Route: 048
     Dates: start: 201711

REACTIONS (2)
  - Off label use [None]
  - Condition aggravated [Not Recovered/Not Resolved]

NARRATIVE: CASE EVENT DATE: 201711
